FAERS Safety Report 4714421-0 (Version None)
Quarter: 2005Q3

REPORT INFORMATION
  Report Type: 
  Country: None (occurrence: None)
  Receive Date: 20050714
  Receipt Date: 20050706
  Transmission Date: 20060218
  Serious: Yes (Life-Threatening, Hospitalization)
  Sender: FDA-Public Use
  Company Number: US-JNJFOC-20050403326

PATIENT
  Sex: Female
  Weight: 86.18 kg

DRUGS (18)
  1. DURAGESIC-100 [Suspect]
     Route: 062
  2. DURAGESIC-100 [Suspect]
     Indication: PAIN
     Route: 062
  3. XYOTAX [Concomitant]
     Route: 042
  4. XYOTAX [Concomitant]
     Indication: LUNG CANCER METASTATIC
     Dosage: (210 MG/M2)
     Route: 042
  5. CARBOPLATIN [Concomitant]
     Indication: LUNG CANCER METASTATIC
     Dosage: AUC 6
     Route: 042
  6. MIRALAX [Concomitant]
  7. DULCOLAX [Concomitant]
  8. SYNTHROID [Concomitant]
  9. MULTI-VITAMINS [Concomitant]
  10. MULTI-VITAMINS [Concomitant]
  11. MULTI-VITAMINS [Concomitant]
  12. MULTI-VITAMINS [Concomitant]
  13. MULTI-VITAMINS [Concomitant]
  14. MULTI-VITAMINS [Concomitant]
  15. MULTI-VITAMINS [Concomitant]
  16. MULTI-VITAMINS [Concomitant]
  17. COMPAZINE [Concomitant]
  18. ATIVAN [Concomitant]

REACTIONS (3)
  - ASTHENIA [None]
  - CONFUSIONAL STATE [None]
  - FEBRILE NEUTROPENIA [None]
